FAERS Safety Report 25159776 (Version 1)
Quarter: 2025Q2

REPORT INFORMATION
  Report Type: Spontaneous
  Country: IN (occurrence: IN)
  Receive Date: 20250404
  Receipt Date: 20250404
  Transmission Date: 20250717
  Serious: Yes (Life-Threatening, Hospitalization)
  Sender: MYLAN
  Company Number: IN-MYLANLABS-2025M1028053

PATIENT
  Age: 7 Decade
  Sex: Female

DRUGS (16)
  1. METHOTREXATE [Suspect]
     Active Substance: METHOTREXATE
     Indication: Immune-mediated myositis
  2. METHOTREXATE [Suspect]
     Active Substance: METHOTREXATE
     Indication: Anti-SRP antibody positive
  3. METHYLPREDNISOLONE [Suspect]
     Active Substance: METHYLPREDNISOLONE
     Indication: Immune-mediated myositis
     Dosage: 1000 MILLIGRAM, QD (FOR 3 DAYS)
  4. METHYLPREDNISOLONE [Suspect]
     Active Substance: METHYLPREDNISOLONE
     Indication: Anti-SRP antibody positive
  5. PREDNISOLONE [Suspect]
     Active Substance: PREDNISOLONE
     Indication: Immune-mediated myositis
  6. PREDNISOLONE [Suspect]
     Active Substance: PREDNISOLONE
     Indication: Anti-SRP antibody positive
  7. PREDNISOLONE [Suspect]
     Active Substance: PREDNISOLONE
  8. AZATHIOPRINE [Suspect]
     Active Substance: AZATHIOPRINE
     Indication: Immune-mediated myositis
     Dosage: 50 MILLIGRAM, QD
  9. AZATHIOPRINE [Suspect]
     Active Substance: AZATHIOPRINE
     Indication: Anti-SRP antibody positive
  10. IMMUNE GLOBULIN NOS [Suspect]
     Active Substance: IMMUNE GLOBULIN NOS
     Indication: Immune-mediated myositis
  11. IMMUNE GLOBULIN NOS [Suspect]
     Active Substance: IMMUNE GLOBULIN NOS
     Indication: Anti-SRP antibody positive
  12. TELMISARTAN [Concomitant]
     Active Substance: TELMISARTAN
     Indication: Hypertension
  13. Glimepiride;Metformin [Concomitant]
     Indication: Type 2 diabetes mellitus
  14. THYROXINE [Concomitant]
     Active Substance: LEVOTHYROXINE
     Indication: Hypothyroidism
     Dosage: 50 MICROGRAM, QD
  15. THYROXINE [Concomitant]
     Active Substance: LEVOTHYROXINE
  16. VITAMIN D [Concomitant]
     Active Substance: VITAMIN D NOS
     Indication: Hypothyroidism

REACTIONS (2)
  - Drug ineffective [Unknown]
  - Off label use [Unknown]
